FAERS Safety Report 5119970-1 (Version None)
Quarter: 2006Q3

REPORT INFORMATION
  Report Type: 
  Country: None (occurrence: None)
  Receive Date: 20060929
  Receipt Date: 20060919
  Transmission Date: 20061208
  Serious: Yes (Other)
  Sender: FDA-Public Use
  Company Number: 2006114294

PATIENT
  Sex: Female

DRUGS (2)
  1. LYRICA [Suspect]
     Indication: NEURALGIA
     Dosage: ORAL
     Route: 048
  2. NEURONTIN [Concomitant]

REACTIONS (6)
  - DISTURBANCE IN ATTENTION [None]
  - ECZEMA [None]
  - EYE INFLAMMATION [None]
  - MELANOCYTIC NAEVUS [None]
  - OPEN WOUND [None]
  - VISION BLURRED [None]
